FAERS Safety Report 6979386-X (Version None)
Quarter: 2010Q3

REPORT INFORMATION
  Report Type: 
  Country: None (occurrence: None)
  Receive Date: 20100910
  Receipt Date: 20100910
  Transmission Date: 20110219
  Serious: Yes (Other)
  Sender: FDA-Public Use
  Company Number: None

PATIENT
  Sex: Female
  Weight: 63.5036 kg

DRUGS (2)
  1. RAMIPRIL [Suspect]
     Indication: HYPERTENSION
     Dosage: 1.25 1 X DAY MOUTH
     Route: 048
     Dates: start: 20100427
  2. RAMIPRIL [Suspect]
     Indication: HYPERTENSION
     Dosage: 1.25 1 X DAY MOUTH
     Route: 048
     Dates: start: 20100510

REACTIONS (1)
  - RAYNAUD'S PHENOMENON [None]
